FAERS Safety Report 6829677-8 (Version None)
Quarter: 2010Q3

REPORT INFORMATION
  Report Type: 
  Country: None (occurrence: None)
  Receive Date: 20100709
  Receipt Date: 20070504
  Transmission Date: 20110219
  Serious: No
  Sender: FDA-Public Use
  Company Number: US-PFIZER INC-2007003420

PATIENT
  Sex: Male

DRUGS (4)
  1. CHANTIX [Suspect]
     Indication: SMOKING CESSATION THERAPY
     Dates: start: 20061122
  2. CARTIA XT [Concomitant]
     Indication: HYPERTENSION
  3. AVAPRO [Concomitant]
     Indication: PSYCHOMOTOR HYPERACTIVITY
  4. ACID PREPARATIONS [Concomitant]
     Indication: HYPERCHLORHYDRIA

REACTIONS (4)
  - ABDOMINAL DISTENSION [None]
  - DRUG INEFFECTIVE [None]
  - INCORRECT DOSE ADMINISTERED [None]
  - WHEEZING [None]
